FAERS Safety Report 8899143 (Version 1)
Quarter: 2012Q4

REPORT INFORMATION
  Report Type: 
  Country: US (occurrence: US)
  Receive Date: 20121109
  Receipt Date: 20121109
  Transmission Date: 20130627
  Serious: Yes (Other)
  Sender: FDA-Public Use
  Company Number: CHPA2012US023041

PATIENT
  Age: 84 Year
  Sex: Female

DRUGS (2)
  1. 4 WAY MENTHOLATED NASAL SPRAY [Suspect]
     Indication: SINUS DISORDER
     Dosage: 2 DF, QHS MOST OF THE TIME
     Route: 045
     Dates: end: 201205
  2. NASACORT [Suspect]
     Dosage: Unk, Unk

REACTIONS (3)
  - Glaucoma [Not Recovered/Not Resolved]
  - Disease recurrence [Not Recovered/Not Resolved]
  - Off label use [Unknown]
